FAERS Safety Report 21689733 (Version 1)
Quarter: 2022Q4

REPORT INFORMATION
  Report Type: Spontaneous
  Country: GB (occurrence: GB)
  Receive Date: 20221206
  Receipt Date: 20221206
  Transmission Date: 20230113
  Serious: Yes (Other)
  Sender: FDA-Public Use
  Company Number: GB-MHRA-MED-202212011133206820-NSRHT

PATIENT
  Age: 41 Year
  Sex: Female
  Weight: 97 kg

DRUGS (2)
  1. PREGABALIN [Suspect]
     Active Substance: PREGABALIN
     Indication: Sciatica
     Dosage: 400 MILLIGRAM, QD (400MG DAILY)
     Route: 065
  2. PREGABALIN [Suspect]
     Active Substance: PREGABALIN
     Dosage: 200 MILLIGRAM, QD
     Route: 065

REACTIONS (2)
  - Muscle spasms [Recovered/Resolved]
  - Depression suicidal [Recovered/Resolved]
